FAERS Safety Report 17287640 (Version 4)
Quarter: 2020Q1

REPORT INFORMATION
  Report Type: Spontaneous
  Country: DE (occurrence: DE)
  Receive Date: 20200120
  Receipt Date: 20200330
  Transmission Date: 20200409
  Serious: Yes (Death, Hospitalization, Other)
  Sender: FDA-Public Use
  Company Number: DE-BRISTOL-MYERS SQUIBB COMPANY-BMS-2020-004259

PATIENT
  Sex: Male
  Weight: 66 kg

DRUGS (2)
  1. YERVOY [Suspect]
     Active Substance: IPILIMUMAB
     Indication: RENAL CELL CARCINOMA
     Route: 065
  2. OPDIVO [Suspect]
     Active Substance: NIVOLUMAB
     Indication: RENAL CELL CARCINOMA
     Dosage: UNAVAILABLE
     Route: 065

REACTIONS (9)
  - Diarrhoea [Unknown]
  - Cardiac arrest [Fatal]
  - Faecal vomiting [Unknown]
  - General physical health deterioration [Unknown]
  - Nausea [Unknown]
  - Pyrexia [Unknown]
  - Gastric disorder [Unknown]
  - Intestinal perforation [Fatal]
  - Chills [Unknown]

NARRATIVE: CASE EVENT DATE: 2019
